FAERS Safety Report 7640502-8 (Version None)
Quarter: 2011Q3

REPORT INFORMATION
  Report Type: 
  Country: None (occurrence: None)
  Receive Date: 20110728
  Receipt Date: 20110718
  Transmission Date: 20111222
  Serious: No
  Sender: FDA-Public Use
  Company Number: US-BIOGENIDEC-2011BI026908

PATIENT
  Age: 40 Year
  Sex: Female

DRUGS (2)
  1. AVONEX [Concomitant]
     Indication: MULTIPLE SCLEROSIS
     Route: 030
  2. TYSABRI [Suspect]
     Indication: MULTIPLE SCLEROSIS
     Route: 042
     Dates: start: 20100224

REACTIONS (8)
  - SINUS DISORDER [None]
  - EYELID MARGIN CRUSTING [None]
  - CONJUNCTIVITIS INFECTIVE [None]
  - MULTIPLE SCLEROSIS RELAPSE [None]
  - APHAGIA [None]
  - NASAL CONGESTION [None]
  - APHASIA [None]
  - OROPHARYNGEAL PAIN [None]
